FAERS Safety Report 16326173 (Version 2)
Quarter: 2019Q2

REPORT INFORMATION
  Report Type: Report from Study
  Country: IT (occurrence: IT)
  Receive Date: 20190517
  Receipt Date: 20190614
  Transmission Date: 20190711
  Serious: Yes (Death)
  Sender: FDA-Public Use
  Company Number: IT-PFIZER INC-2019211134

PATIENT
  Age: 62 Year
  Sex: Female
  Weight: 42 kg

DRUGS (2)
  1. LORLATINIB [Suspect]
     Active Substance: LORLATINIB
     Dosage: 100 MG, 1X/DAY
     Route: 048
     Dates: start: 20181019, end: 20190409
  2. SELEDIE [Concomitant]
     Indication: THROMBOSIS
     Dosage: 0.6 ML, 1X/DAY
     Route: 058
     Dates: start: 20190404, end: 20190410

REACTIONS (1)
  - Cerebrovascular accident [Fatal]

NARRATIVE: CASE EVENT DATE: 20190409
